FAERS Safety Report 26213490 (Version 1)
Quarter: 2025Q4

REPORT INFORMATION
  Report Type: Spontaneous
  Country: GB (occurrence: GB)
  Receive Date: 20251230
  Receipt Date: 20251230
  Transmission Date: 20260117
  Serious: Yes (Other)
  Sender: MYLAN
  Company Number: GB-002147023-PHFR2016GB003059

PATIENT
  Age: 33 Year
  Sex: Female

DRUGS (3)
  1. CLOZARIL [Suspect]
     Active Substance: CLOZAPINE
     Indication: Schizophrenia
     Dosage: UNK
     Route: 061
  2. CLOZARIL [Suspect]
     Active Substance: CLOZAPINE
     Dosage: UNK, BID (CLOZAPINE 50MG OM, 300MG ON)
     Route: 061
     Dates: start: 201410, end: 20150611
  3. CLOZARIL [Suspect]
     Active Substance: CLOZAPINE
     Dosage: UNK
     Route: 061
     Dates: start: 20150612, end: 20160425

REACTIONS (7)
  - Schizophrenia [Unknown]
  - Blood potassium decreased [Recovering/Resolving]
  - Purging [Unknown]
  - Decreased appetite [Unknown]
  - Vomiting [Recovering/Resolving]
  - White blood cell count decreased [Recovered/Resolved]
  - Neutrophil count decreased [Not Recovered/Not Resolved]

NARRATIVE: CASE EVENT DATE: 20150601
